FAERS Safety Report 8463740-3 (Version None)
Quarter: 2012Q2

REPORT INFORMATION
  Report Type: 
  Country: None (occurrence: None)
  Receive Date: 20120625
  Receipt Date: 20120620
  Transmission Date: 20120825
  Serious: Yes (Hospitalization)
  Sender: FDA-Public Use
  Company Number: PHEH2012US012271

PATIENT
  Sex: Female

DRUGS (3)
  1. QUINAPRIL [Concomitant]
     Indication: BLOOD PRESSURE
     Dosage: 20 MG, BID
     Route: 048
  2. METOPROLOL TARTRATE [Concomitant]
     Indication: HEART RATE
     Dosage: 25 MG, BID
     Route: 048
  3. RECLAST [Suspect]
     Indication: OSTEOPOROSIS
     Dosage: UNK UKN, ONCE A YEAR
     Route: 042
     Dates: start: 20120605

REACTIONS (1)
  - HEART RATE INCREASED [None]
